FAERS Safety Report 18144467 (Version 1)
Quarter: 2020Q3

REPORT INFORMATION
  Report Type: Spontaneous
  Country: US (occurrence: US)
  Receive Date: 20200812
  Receipt Date: 20200812
  Transmission Date: 20201103
  Serious: No
  Sender: FDA-Public Use
  Company Number: None

PATIENT
  Age: 76 Year
  Sex: Male
  Weight: 77.11 kg

DRUGS (10)
  1. VOTRIENT [Suspect]
     Active Substance: PAZOPANIB HYDROCHLORIDE
     Indication: RENAL CANCER
     Route: 048
     Dates: start: 20191227
  2. ASACOL HD [Concomitant]
     Active Substance: MESALAMINE
  3. ASPIRIN. [Concomitant]
     Active Substance: ASPIRIN
  4. KLOR?CON [Concomitant]
     Active Substance: POTASSIUM CHLORIDE
  5. VITAMIN D3 [Concomitant]
     Active Substance: CHOLECALCIFEROL
  6. ZOFRAN [Concomitant]
     Active Substance: ONDANSETRON HYDROCHLORIDE
  7. LISINOPRIL. [Concomitant]
     Active Substance: LISINOPRIL
  8. LOPRESSOR [Concomitant]
     Active Substance: METOPROLOL TARTRATE
  9. PROSCAR [Concomitant]
     Active Substance: FINASTERIDE
  10. ZYLOPRIM [Concomitant]
     Active Substance: ALLOPURINOL

REACTIONS (2)
  - Gastrointestinal disorder [None]
  - Weight decreased [None]

NARRATIVE: CASE EVENT DATE: 20200812
